FAERS Safety Report 5096231-0 (Version None)
Quarter: 2006Q3

REPORT INFORMATION
  Report Type: 
  Country: None (occurrence: None)
  Receive Date: 20060905
  Receipt Date: 20060829
  Transmission Date: 20061208
  Serious: Yes (Other)
  Sender: FDA-Public Use
  Company Number: US-MERCK-0608USA06858

PATIENT
  Age: 85 Year
  Sex: Female

DRUGS (7)
  1. CANCIDAS [Suspect]
     Indication: CANDIDIASIS
     Route: 042
     Dates: start: 20060827, end: 20060827
  2. CANCIDAS [Suspect]
     Route: 042
     Dates: start: 20060828, end: 20060829
  3. AMIODARONA [Concomitant]
     Route: 065
  4. FLUCONAZOLE [Concomitant]
     Route: 065
  5. LEVOTHYROXINE SODIUM [Concomitant]
     Route: 065
  6. ACETAMINOPHEN [Concomitant]
     Route: 065
  7. DILANTIN [Concomitant]
     Route: 065

REACTIONS (1)
  - HEPATIC FAILURE [None]
